FAERS Safety Report 8750159 (Version 2)
Quarter: 2013Q1

REPORT INFORMATION
  Report Type: Spontaneous
  Country: US (occurrence: None)
  Receive Date: 20120809
  Receipt Date: 20130118
  Transmission Date: 20140127
  Serious: Yes (Death)
  Sender: FDA-Public Use
  Company Number: ALK_02777_2012

PATIENT
  Age: 26 Year
  Sex: Female

DRUGS (2)
  1. VIVITROL [Suspect]
     Indication: DRUG DEPENDENCE
     Dosage: 380 MG, INTRAMUSCULAR
     Route: 030
     Dates: start: 20120516, end: 20120516
  2. APO-AIR (PROCATEROL HYDROCHLORIE) [Concomitant]

REACTIONS (2)
  - Overdose [None]
  - Drug abuse [None]
